FAERS Safety Report 19987462 (Version 1)
Quarter: 2021Q4

REPORT INFORMATION
  Report Type: Spontaneous
  Country: PL (occurrence: PL)
  Receive Date: 20211022
  Receipt Date: 20211022
  Transmission Date: 20220303
  Serious: Yes (Other)
  Sender: FDA-Public Use
  Company Number: PL-NOVARTISPH-NVSC2021PL240361

PATIENT
  Age: 58 Year
  Sex: Female

DRUGS (1)
  1. KISQALI [Suspect]
     Active Substance: RIBOCICLIB
     Indication: Product used for unknown indication
     Dosage: 600 MG
     Route: 065

REACTIONS (4)
  - Leukopenia [Unknown]
  - Hepatotoxicity [Unknown]
  - Metastases to bone [Unknown]
  - Metastases to liver [Unknown]
